FAERS Safety Report 23354742 (Version 2)
Quarter: 2024Q1

REPORT INFORMATION
  Report Type: Spontaneous
  Country: US (occurrence: None)
  Receive Date: 20240101
  Receipt Date: 20240102
  Transmission Date: 20240410
  Serious: Yes (Life-Threatening, Hospitalization, Other)
  Sender: FDA-Public Use
  Company Number: 2023A294101

PATIENT
  Age: 74 Year
  Sex: Male
  Weight: 67.1 kg

DRUGS (2)
  1. LYNPARZA [Suspect]
     Active Substance: OLAPARIB
     Indication: Mesothelioma
     Route: 048
     Dates: start: 20230201, end: 202312
  2. PRILOSEC [Suspect]
     Active Substance: OMEPRAZOLE MAGNESIUM
     Route: 048
     Dates: start: 20231205

REACTIONS (29)
  - Hyponatraemia [Recovering/Resolving]
  - Generalised oedema [Recovering/Resolving]
  - Weight increased [Unknown]
  - Tachycardia [Unknown]
  - Acute respiratory failure [Recovered/Resolved]
  - Pericardial effusion [Unknown]
  - Pneumonia [Unknown]
  - Dyspnoea [Unknown]
  - Oedema peripheral [Unknown]
  - Localised oedema [Unknown]
  - Weight abnormal [Unknown]
  - Dyspnoea exertional [Unknown]
  - Heart rate increased [Unknown]
  - Blood pressure decreased [Unknown]
  - Blood sodium decreased [Unknown]
  - Blood chloride decreased [Unknown]
  - Blood glucose increased [Unknown]
  - N-terminal prohormone brain natriuretic peptide increased [Unknown]
  - White blood cell count increased [Unknown]
  - Hyperlipidaemia [Unknown]
  - Hypoxia [Unknown]
  - Peripheral swelling [Unknown]
  - Dizziness [Unknown]
  - Dizziness [Unknown]
  - Inappropriate antidiuretic hormone secretion [Unknown]
  - Fluid retention [Unknown]
  - Full blood count abnormal [Unknown]
  - Metabolic function test abnormal [Unknown]
  - Electrocardiogram abnormal [Unknown]

NARRATIVE: CASE EVENT DATE: 20231224
